FAERS Safety Report 20369901 (Version 1)
Quarter: 2022Q1

REPORT INFORMATION
  Report Type: Spontaneous
  Country: PL (occurrence: PL)
  Receive Date: 20220124
  Receipt Date: 20220124
  Transmission Date: 20220423
  Serious: Yes (Other)
  Sender: FDA-Public Use
  Company Number: PL-GLAXOSMITHKLINE-PL2022GSK004434

PATIENT
  Sex: Male

DRUGS (11)
  1. AZITHROMYCIN [Suspect]
     Active Substance: AZITHROMYCIN
     Indication: Upper respiratory tract infection
     Dosage: 500 MILLIGRAM, QD (500 MG, 1D)
     Dates: start: 201801
  2. LEVOFLOXACIN [Suspect]
     Active Substance: LEVOFLOXACIN
     Indication: Tonsillitis
     Dosage: 500 MILLIGRAM, QD (500 MG, 1D)
     Dates: start: 2018
  3. LEVOFLOXACIN [Suspect]
     Active Substance: LEVOFLOXACIN
     Indication: Pharyngitis bacterial
  4. CEFUROXIME [Suspect]
     Active Substance: CEFUROXIME
     Indication: Upper respiratory tract infection
     Dosage: 2250 MILLIGRAM, QD (750 MG, TID)
     Route: 030
     Dates: start: 201801
  5. AMOXICILLIN [Suspect]
     Active Substance: AMOXICILLIN
     Indication: Toothache
     Dosage: 1 GRAM, BID (1 G,EVERY 12 HOURS)
     Route: 048
     Dates: start: 201801
  6. AMOXICILLIN [Suspect]
     Active Substance: AMOXICILLIN
     Indication: Swelling face
  7. CLARITHROMYCIN [Suspect]
     Active Substance: CLARITHROMYCIN
     Indication: Upper respiratory tract infection
     Dosage: 100 MILLIGRAM, QD (100 MG, 1D)
     Dates: start: 201801
  8. CICLESONIDE [Concomitant]
     Active Substance: CICLESONIDE
     Indication: Asthma
     Dosage: UNK
     Dates: start: 2018
  9. METHANDROSTENOLONE [Concomitant]
     Active Substance: METHANDROSTENOLONE
     Indication: Steroid therapy
     Dosage: UNK
  10. BISOPROLOL [Concomitant]
     Active Substance: BISOPROLOL
     Indication: Hypertension
     Dosage: 1.25 MILLIGRAM, QD (1.25 MG, 1D)
  11. BUDESONIDE [Concomitant]
     Active Substance: BUDESONIDE
     Indication: Asthma
     Dosage: UNK
     Dates: start: 2018

REACTIONS (16)
  - Mental impairment [Recovered/Resolved]
  - Mood altered [Recovered/Resolved]
  - Chest pain [Unknown]
  - Asthenia [Unknown]
  - Depression [Recovered/Resolved]
  - Tension headache [Unknown]
  - Panic attack [Recovered/Resolved]
  - Abdominal pain upper [Unknown]
  - Fear [Unknown]
  - Anhedonia [Unknown]
  - Diarrhoea [Recovering/Resolving]
  - Weight decreased [Unknown]
  - Anxiety [Recovering/Resolving]
  - Decreased appetite [Unknown]
  - Dysbiosis [Unknown]
  - Dizziness [Recovered/Resolved]
